FAERS Safety Report 6510191-4 (Version None)
Quarter: 2009Q4

REPORT INFORMATION
  Report Type: 
  Country: None (occurrence: None)
  Receive Date: 20091217
  Receipt Date: 20091204
  Transmission Date: 20100525
  Serious: Yes (Life-Threatening, Hospitalization, Disabling)
  Sender: FDA-Public Use
  Company Number: AMI0016329

PATIENT
  Age: 68 Year
  Sex: Female

DRUGS (2)
  1. TIMOLOL MALEATE [Suspect]
     Indication: INTRAOCULAR PRESSURE TEST
     Dosage: 1 DROP BID OSOD- 046
     Dates: start: 20030101
  2. XALATAN [Concomitant]

REACTIONS (5)
  - BRAIN STEM HAEMORRHAGE [None]
  - DIZZINESS [None]
  - HEMIPLEGIA [None]
  - PYREXIA [None]
  - SYNCOPE [None]
